APPROVED DRUG PRODUCT: FLUPHENAZINE HYDROCHLORIDE
Active Ingredient: FLUPHENAZINE HYDROCHLORIDE
Strength: 1MG
Dosage Form/Route: TABLET;ORAL
Application: A214552 | Product #001 | TE Code: AB
Applicant: ZYDUS LIFESCIENCES GLOBAL FZE
Approved: May 27, 2021 | RLD: No | RS: No | Type: RX